FAERS Safety Report 8152638-6 (Version None)
Quarter: 2012Q1

REPORT INFORMATION
  Report Type: 
  Country: None (occurrence: None)
  Receive Date: 20120216
  Receipt Date: 20120216
  Transmission Date: 20120608
  Serious: No
  Sender: FDA-Public Use
  Company Number: None

PATIENT
  Sex: Female

DRUGS (8)
  1. AMPYRA [Suspect]
     Indication: MULTIPLE SCLEROSIS
     Dosage: AMPYRA 10MG Q12HOURS ORAL
     Route: 048
     Dates: start: 20100624, end: 20101001
  2. AMPYRA [Suspect]
     Indication: MULTIPLE SCLEROSIS
     Dosage: AMPYRA 10MG Q12HOURS ORAL
     Route: 048
     Dates: start: 20110826, end: 20110919
  3. GLIPIZIDE [Concomitant]
  4. ESTRADIOL [Concomitant]
  5. AMLODIPINE [Concomitant]
  6. BACLOFEN [Concomitant]
  7. LIPITOR [Concomitant]
  8. LISINOPRIL AND HYDROCHLOROTHIAZIDE [Concomitant]

REACTIONS (1)
  - INSOMNIA [None]
